FAERS Safety Report 13240630 (Version 2)
Quarter: 2017Q1

REPORT INFORMATION
  Report Type: Spontaneous
  Country: US (occurrence: US)
  Receive Date: 20170216
  Receipt Date: 20170220
  Transmission Date: 20170428
  Serious: No
  Sender: FDA-Public Use
  Company Number: US-BAYER-2017-031755

PATIENT
  Age: 54 Year
  Sex: Female

DRUGS (1)
  1. BETASERON [Suspect]
     Active Substance: INTERFERON BETA-1B
     Indication: MULTIPLE SCLEROSIS
     Dosage: 0.3 MG, UNK

REACTIONS (6)
  - Blood pressure increased [None]
  - Fatigue [None]
  - Influenza [None]
  - Asthenia [None]
  - Nasopharyngitis [None]
  - Oropharyngeal pain [None]

NARRATIVE: CASE EVENT DATE: 201612
